FAERS Safety Report 7320873-2 (Version None)
Quarter: 2011Q1

REPORT INFORMATION
  Report Type: 
  Country: None (occurrence: None)
  Receive Date: 20110228
  Receipt Date: 20110223
  Transmission Date: 20110831
  Serious: Yes (Other)
  Sender: FDA-Public Use
  Company Number: NO-MERCK-1101NOR00001

PATIENT
  Age: 39 Year
  Sex: Female

DRUGS (4)
  1. IRBESARTAN [Concomitant]
     Indication: METABOLIC SYNDROME
     Route: 048
  2. PANTOPRAZOLE SODIUM [Concomitant]
     Route: 048
  3. ZOCOR [Suspect]
     Indication: METABOLIC SYNDROME
     Route: 048
     Dates: end: 20110201
  4. METFORMIN [Concomitant]
     Indication: METABOLIC SYNDROME
     Route: 048

REACTIONS (2)
  - COGNITIVE DISORDER [None]
  - ENCEPHALOPATHY [None]
